FAERS Safety Report 5073656-0 (Version None)
Quarter: 2006Q3

REPORT INFORMATION
  Report Type: 
  Country: None (occurrence: None)
  Receive Date: 20060808
  Receipt Date: 20050302
  Transmission Date: 20061208
  Serious: No
  Sender: FDA-Public Use
  Company Number: US-AMGEN-KDL120282

PATIENT
  Age: 29 Year
  Sex: Female
  Weight: 36.3 kg

DRUGS (8)
  1. PROCRIT [Suspect]
     Indication: HIV INFECTION
     Dates: start: 20030101
  2. NEULASTA [Concomitant]
  3. LEXAPRO [Concomitant]
  4. ZYPREXA [Concomitant]
  5. PERCOCET [Concomitant]
  6. DURAGESIC-100 [Concomitant]
     Route: 062
  7. ELAVIL [Concomitant]
  8. TENOFOVIR DISOPROXIL FUMARAT [Concomitant]

REACTIONS (2)
  - HYPOAESTHESIA [None]
  - INFECTION [None]
